FAERS Safety Report 7877379-1 (Version None)
Quarter: 2011Q4

REPORT INFORMATION
  Report Type: 
  Country: None (occurrence: None)
  Receive Date: 20111031
  Receipt Date: 20111025
  Transmission Date: 20120403
  Serious: Yes (Life-Threatening, Hospitalization, Other)
  Sender: FDA-Public Use
  Company Number: US-ASTRAZENECA-2011SE64571

PATIENT
  Age: 62 Year
  Sex: Female

DRUGS (1)
  1. SEROQUEL [Suspect]
     Indication: SLEEP DISORDER
     Route: 048

REACTIONS (5)
  - RESPIRATORY ARREST [None]
  - DECUBITUS ULCER [None]
  - ASPIRATION [None]
  - DEMENTIA ALZHEIMER'S TYPE [None]
  - OFF LABEL USE [None]
